FAERS Safety Report 7309060-1 (Version None)
Quarter: 2011Q1

REPORT INFORMATION
  Report Type: 
  Country: None (occurrence: None)
  Receive Date: 20110211
  Receipt Date: 20110127
  Transmission Date: 20110831
  Serious: Yes (Other)
  Sender: FDA-Public Use
  Company Number: AUR-APL-2011-00403

PATIENT
  Age: 60 Year
  Sex: Female

DRUGS (2)
  1. SIMVASTATIN [Suspect]
     Indication: HYPERCHOLESTEROLAEMIA
     Dosage: 20MG
     Dates: start: 20070322, end: 20101003
  2. SIMVASTATIN [Suspect]
     Indication: HYPERCHOLESTEROLAEMIA
     Dosage: 40MG
     Dates: start: 20070118, end: 20070321

REACTIONS (13)
  - MUSCLE SPASMS [None]
  - HYPOAESTHESIA [None]
  - MYALGIA [None]
  - AMNESIA [None]
  - JOINT STIFFNESS [None]
  - DEPRESSION [None]
  - SYNCOPE [None]
  - NECK PAIN [None]
  - DIARRHOEA [None]
  - HEADACHE [None]
  - LOSS OF CONSCIOUSNESS [None]
  - PAIN IN EXTREMITY [None]
  - FATIGUE [None]
